FAERS Safety Report 6243382-0 (Version None)
Quarter: 2009Q2

REPORT INFORMATION
  Report Type: 
  Country: None (occurrence: None)
  Receive Date: 20090622
  Receipt Date: 20090622
  Transmission Date: 20091009
  Serious: No
  Sender: FDA-Public Use
  Company Number: None

PATIENT
  Age: 22 Year
  Sex: Female
  Weight: 54.8852 kg

DRUGS (1)
  1. ZICAM NOSE SPRAY [Suspect]
     Indication: NASOPHARYNGITIS
     Dosage: USED TWICE WINTER OF 2004
     Dates: start: 20040101

REACTIONS (1)
  - HYPOSMIA [None]
